FAERS Safety Report 19092246 (Version 1)
Quarter: 2021Q2

REPORT INFORMATION
  Report Type: Report from Study
  Country: AU (occurrence: AU)
  Receive Date: 20210405
  Receipt Date: 20210405
  Transmission Date: 20210717
  Serious: Yes (Other)
  Sender: FDA-Public Use
  Company Number: NVSC2021AU067965

PATIENT
  Age: 20 Month
  Weight: 9.8 kg

DRUGS (1)
  1. AVXS?101 [Suspect]
     Active Substance: ONASEMNOGENE ABEPARVOVEC
     Indication: SPINAL MUSCULAR ATROPHY
     Dosage: UNK
     Route: 042

REACTIONS (2)
  - Platelet count decreased [Unknown]
  - Aspartate aminotransferase increased [Unknown]
